FAERS Safety Report 9464180 (Version 1)
Quarter: 2013Q3

REPORT INFORMATION
  Report Type: Spontaneous
  Country: US (occurrence: US)
  Receive Date: 20130819
  Receipt Date: 20130819
  Transmission Date: 20140515
  Serious: Yes (Other)
  Sender: FDA-Public Use
  Company Number: US-BAYER-2013-098543

PATIENT
  Age: 35 Year
  Sex: Female

DRUGS (9)
  1. YASMIN [Suspect]
  2. BACTROBAN [Concomitant]
  3. ACETILIN [Concomitant]
  4. ALLEGRA [Concomitant]
  5. PREDNISONE [Concomitant]
  6. HYCOTUSS [Concomitant]
  7. ZITHROMAX [Concomitant]
  8. PROVENTIL [Concomitant]
  9. PREVACID [Concomitant]

REACTIONS (1)
  - Thrombophlebitis superficial [None]
